FAERS Safety Report 17950147 (Version 4)
Quarter: 2021Q1

REPORT INFORMATION
  Report Type: Report from Study
  Country: GB (occurrence: GB)
  Receive Date: 20200626
  Receipt Date: 20210119
  Transmission Date: 20210419
  Serious: Yes (Hospitalization, Other)
  Sender: FDA-Public Use
  Company Number: NVSC2020GB179203

PATIENT
  Sex: Male

DRUGS (3)
  1. COSENTYX [Suspect]
     Active Substance: SECUKINUMAB
     Dosage: 150 MG, QMO
     Route: 058
     Dates: start: 20200701
  2. NAPROXEN. [Concomitant]
     Active Substance: NAPROXEN
     Indication: ARTHRITIS
     Dosage: UNK
     Route: 065
  3. COSENTYX [Suspect]
     Active Substance: SECUKINUMAB
     Indication: ANKYLOSING SPONDYLITIS
     Dosage: 150 MG, QMO
     Route: 058
     Dates: start: 2017

REACTIONS (10)
  - Nasopharyngitis [Unknown]
  - Decreased appetite [Unknown]
  - Arthritis bacterial [Unknown]
  - Productive cough [Unknown]
  - Gout [Unknown]
  - Bone pain [Unknown]
  - Limb discomfort [Unknown]
  - Gait inability [Unknown]
  - Lower respiratory tract infection [Unknown]
  - Decreased immune responsiveness [Unknown]
